FAERS Safety Report 5285328-8 (Version None)
Quarter: 2007Q2

REPORT INFORMATION
  Report Type: 
  Country: None (occurrence: None)
  Receive Date: 20070403
  Receipt Date: 20070326
  Transmission Date: 20071010
  Serious: Yes (Hospitalization)
  Sender: FDA-Public Use
  Company Number: US-PFIZER INC-2007023972

PATIENT
  Sex: Female

DRUGS (1)
  1. NORVASC [Suspect]

REACTIONS (2)
  - HEART RATE INCREASED [None]
  - HYPERTENSION [None]
